FAERS Safety Report 18946999 (Version 7)
Quarter: 2022Q1

REPORT INFORMATION
  Report Type: Spontaneous
  Country: US (occurrence: None)
  Receive Date: 20210226
  Receipt Date: 20220130
  Transmission Date: 20220423
  Serious: Yes (Other)
  Sender: FDA-Public Use
  Company Number: US-ROCHE-2708292

PATIENT
  Sex: Female

DRUGS (3)
  1. XELODA [Suspect]
     Active Substance: CAPECITABINE
     Indication: Product used for unknown indication
     Route: 065
     Dates: start: 20201002
  2. TUKYSA [Suspect]
     Active Substance: TUCATINIB
     Indication: Product used for unknown indication
     Route: 065
     Dates: start: 20201002
  3. CEPHALEXIN [Concomitant]
     Active Substance: CEPHALEXIN

REACTIONS (16)
  - Neutrophil count decreased [Unknown]
  - Optic neuritis [Unknown]
  - Brain oedema [Unknown]
  - White blood cell count decreased [Unknown]
  - Headache [Recovering/Resolving]
  - Pulmonary mass [Recovered/Resolved]
  - Lymphadenopathy [Recovered/Resolved]
  - Eye disorder [Unknown]
  - Dizziness [Unknown]
  - Osteogenesis imperfecta [Unknown]
  - Feeling abnormal [Unknown]
  - Fatigue [Unknown]
  - Ill-defined disorder [Unknown]
  - Sinusitis [Unknown]
  - Dysphagia [Unknown]
  - Incorrect dose administered [Unknown]
